FAERS Safety Report 19517339 (Version 1)
Quarter: 2021Q3

REPORT INFORMATION
  Report Type: Spontaneous
  Country: US (occurrence: US)
  Receive Date: 20210712
  Receipt Date: 20210712
  Transmission Date: 20211014
  Serious: No
  Sender: FDA-Public Use
  Company Number: US-TEVA-2021-US-1929935

PATIENT
  Sex: Female

DRUGS (5)
  1. DEXTROSTAT [Suspect]
     Active Substance: DEXTROAMPHETAMINE SULFATE
     Route: 065
  2. XYREM [Suspect]
     Active Substance: SODIUM OXYBATE
     Route: 065
  3. ATIVAN [Suspect]
     Active Substance: LORAZEPAM
     Route: 065
  4. MODAFINIL. [Suspect]
     Active Substance: MODAFINIL
     Route: 065
  5. NUVIGIL [Suspect]
     Active Substance: ARMODAFINIL
     Route: 065

REACTIONS (4)
  - Negative thoughts [Unknown]
  - Withdrawal syndrome [Unknown]
  - Anxiety [Unknown]
  - Nausea [Unknown]
